FAERS Safety Report 7480229-9 (Version None)
Quarter: 2011Q2

REPORT INFORMATION
  Report Type: 
  Country: None (occurrence: None)
  Receive Date: 20110516
  Receipt Date: 20110506
  Transmission Date: 20111010
  Serious: No
  Sender: FDA-Public Use
  Company Number: US-BIOGENIDEC-2011BI017507

PATIENT
  Age: 38 Year
  Sex: Female

DRUGS (2)
  1. TYSABRI [Suspect]
     Indication: MULTIPLE SCLEROSIS
     Route: 042
     Dates: start: 20061020
  2. TYSABRI [Suspect]
     Route: 042
     Dates: start: 20050201, end: 20050201

REACTIONS (7)
  - MOBILITY DECREASED [None]
  - ABDOMINAL PAIN UPPER [None]
  - FATIGUE [None]
  - MUSCULAR WEAKNESS [None]
  - NUCLEAR MAGNETIC RESONANCE IMAGING ABNORMAL [None]
  - FALL [None]
  - BALANCE DISORDER [None]
